FAERS Safety Report 24744902 (Version 4)
Quarter: 2025Q1

REPORT INFORMATION
  Report Type: Spontaneous
  Country: US (occurrence: US)
  Receive Date: 20241217
  Receipt Date: 20250320
  Transmission Date: 20250409
  Serious: No
  Sender: PFIZER
  Company Number: US-PFIZER INC-202400319302

PATIENT

DRUGS (1)
  1. THROMBIN-JMI [Suspect]
     Active Substance: THROMBIN

REACTIONS (2)
  - Product reconstitution quality issue [Unknown]
  - Device defective [Unknown]
